FAERS Safety Report 7467811-X (Version None)
Quarter: 2011Q2

REPORT INFORMATION
  Report Type: 
  Country: None (occurrence: None)
  Receive Date: 20110509
  Receipt Date: 20110120
  Transmission Date: 20111010
  Serious: No
  Sender: FDA-Public Use
  Company Number: US-ALEXION-A201100092

PATIENT
  Sex: Male
  Weight: 139.23 kg

DRUGS (11)
  1. SOLIRIS [Suspect]
     Indication: PAROXYSMAL NOCTURNAL HAEMOGLOBINURIA
     Dosage: 900 MG, UNK
     Route: 042
     Dates: start: 20101022
  2. PILOCARPINE [Concomitant]
     Dosage: 1 GTT OS, QD
     Route: 031
  3. VITAMIN B-12 [Concomitant]
     Indication: PERNICIOUS ANAEMIA
     Dosage: 2500 MG, QOD
  4. FOLATE [Concomitant]
     Dosage: 1 MG, QD
  5. UROXATRAL [Concomitant]
     Dosage: 10 MG, QD
  6. LASIX [Concomitant]
     Dosage: 40 MG, QOD
  7. VITAMIN B6 [Concomitant]
     Dosage: 50 MG, QD
  8. PRESERVISION LUTEIN EYE VITA.+MIN.SUP.SOFTG. [Concomitant]
     Dosage: UNK, QD
  9. K-DUR [Concomitant]
     Dosage: 20 UNK, QOD
  10. TOPROL-XL [Concomitant]
     Indication: ATRIAL FIBRILLATION
     Dosage: 12.5 MG, QD
  11. DANAZOL [Concomitant]
     Dosage: 200 MG, BID

REACTIONS (7)
  - BACK PAIN [None]
  - WEIGHT INCREASED [None]
  - FALL [None]
  - HAEMOGLOBINURIA [None]
  - DIZZINESS [None]
  - CONSTIPATION [None]
  - MUSCULAR WEAKNESS [None]
